FAERS Safety Report 4432085-0 (Version None)
Quarter: 2004Q3

REPORT INFORMATION
  Report Type: 
  Country: None (occurrence: None)
  Receive Date: 20040818
  Receipt Date: 20040805
  Transmission Date: 20050211
  Serious: Yes (Other)
  Sender: FDA-Public Use
  Company Number: 198766

PATIENT
  Age: 51 Year
  Sex: Female

DRUGS (6)
  1. AVONEX [Suspect]
     Indication: MULTIPLE SCLEROSIS
     Dosage: 30 MCG QW IM
     Route: 030
     Dates: start: 19990101
  2. AVONEX [Suspect]
     Indication: MULTIPLE SCLEROSIS
     Dosage: 30 MCG QW IM
  3. IBUPROFEN [Concomitant]
  4. VALIUM [Concomitant]
  5. OGEN [Concomitant]
  6. PAXIL [Concomitant]

REACTIONS (2)
  - SQUAMOUS CELL CARCINOMA [None]
  - THROAT CANCER [None]
